FAERS Safety Report 5730583-0 (Version None)
Quarter: 2008Q2

REPORT INFORMATION
  Report Type: 
  Country: None (occurrence: None)
  Receive Date: 20080505
  Receipt Date: 20080505
  Transmission Date: 20081010
  Serious: No
  Sender: FDA-Public Use
  Company Number: None

PATIENT
  Age: 64 Year
  Sex: Male
  Weight: 91.173 kg

DRUGS (4)
  1. CRESTOR [Suspect]
     Indication: HIGH DENSITY LIPOPROTEIN
     Dosage: 1 DAILY PO
     Route: 048
     Dates: start: 20070401, end: 20080430
  2. CRESTOR [Suspect]
     Indication: LOW DENSITY LIPOPROTEIN
     Dosage: 1 DAILY PO
     Route: 048
     Dates: start: 20070401, end: 20080430
  3. NIASPAN [Suspect]
     Indication: HIGH DENSITY LIPOPROTEIN
     Dosage: 1 DAILY PO
     Route: 048
     Dates: start: 20070401, end: 20080430
  4. NIASPAN [Suspect]
     Indication: LOW DENSITY LIPOPROTEIN
     Dosage: 1 DAILY PO
     Route: 048
     Dates: start: 20070401, end: 20080430

REACTIONS (1)
  - MYALGIA [None]
